FAERS Safety Report 16551152 (Version 2)
Quarter: 2019Q3

REPORT INFORMATION
  Report Type: Report from Study
  Country: US (occurrence: US)
  Receive Date: 20190710
  Receipt Date: 20190905
  Transmission Date: 20191004
  Serious: Yes (Hospitalization)
  Sender: FDA-Public Use
  Company Number: US-IPSEN BIOPHARMACEUTICALS, INC.-2019-11876

PATIENT
  Age: 49 Year
  Sex: Male
  Weight: 68.7 kg

DRUGS (3)
  1. RUCAPARIB [Suspect]
     Active Substance: RUCAPARIB
     Indication: RECTAL CANCER
     Dosage: DAYS 4-13 AND 18-27
     Route: 048
     Dates: start: 20190626
  2. ONIVYDE [Suspect]
     Active Substance: IRINOTECAN HYDROCHLORIDE
     Indication: RECTAL CANCER
     Dosage: DOSE NOT REPORTED
     Route: 042
     Dates: start: 20190613
  3. ONIVYDE [Suspect]
     Active Substance: IRINOTECAN HYDROCHLORIDE
     Indication: OFF LABEL USE

REACTIONS (2)
  - Off label use [Unknown]
  - Proctalgia [Unknown]

NARRATIVE: CASE EVENT DATE: 20190613
